FAERS Safety Report 9277193 (Version 1)
Quarter: 2013Q2

REPORT INFORMATION
  Report Type: Spontaneous
  Country: US (occurrence: US)
  Receive Date: 20130508
  Receipt Date: 20130508
  Transmission Date: 20140414
  Serious: No
  Sender: FDA-Public Use
  Company Number: US-009507513-1305USA000622

PATIENT
  Age: 25 Year
  Sex: Female

DRUGS (1)
  1. NEXPLANON [Suspect]
     Indication: CONTRACEPTION
     Dosage: 1 ROD,THREE YEARS
     Route: 059
     Dates: start: 20130329, end: 20130419

REACTIONS (4)
  - Halo vision [Recovering/Resolving]
  - Implant site erythema [Recovering/Resolving]
  - Implant site swelling [Recovering/Resolving]
  - Implant site pruritus [Recovering/Resolving]
